FAERS Safety Report 5107340-1 (Version None)
Quarter: 2006Q3

REPORT INFORMATION
  Report Type: 
  Country: None (occurrence: None)
  Receive Date: 20060914
  Receipt Date: 20060831
  Transmission Date: 20061208
  Serious: Yes (Hospitalization)
  Sender: FDA-Public Use
  Company Number: US192258

PATIENT
  Age: 62 Year
  Sex: Male

DRUGS (5)
  1. NEUPOGEN [Suspect]
  2. CLINDAMYCIN [Concomitant]
  3. VALACYCLOVIR HCL [Concomitant]
  4. TRIMETHOPRIM + SULFAMETHOXAZOLE [Concomitant]
  5. PREDNISONE [Concomitant]

REACTIONS (3)
  - ACUTE FEBRILE NEUTROPHILIC DERMATOSIS [None]
  - CELLULITIS [None]
  - HAEMATOMA [None]
